FAERS Safety Report 10525374 (Version 4)
Quarter: 2015Q1

REPORT INFORMATION
  Report Type: Spontaneous
  Country: US (occurrence: US)
  Receive Date: 20141017
  Receipt Date: 20150324
  Transmission Date: 20150720
  Serious: Yes (Death, Hospitalization, Other)
  Sender: FDA-Public Use
  Company Number: US-PFIZER INC-2014284661

PATIENT
  Age: 75 Year
  Sex: Female
  Weight: 52.15 kg

DRUGS (2)
  1. REVATIO [Suspect]
     Active Substance: SILDENAFIL CITRATE
     Indication: PULMONARY HYPERTENSION
     Dosage: 1 DF, 1X/DAY
  2. TRACLEER [Concomitant]
     Active Substance: BOSENTAN\BOSENTAN MONOHYDRATE
     Indication: PULMONARY HYPERTENSION
     Dosage: UNK

REACTIONS (4)
  - Epistaxis [Unknown]
  - Cardiac failure congestive [Fatal]
  - Disease progression [Fatal]
  - Pulmonary hypertension [Fatal]
